FAERS Safety Report 7501978-X (Version None)
Quarter: 2011Q2

REPORT INFORMATION
  Report Type: 
  Country: None (occurrence: None)
  Receive Date: 20110525
  Receipt Date: 20110514
  Transmission Date: 20111010
  Serious: Yes (Other)
  Sender: FDA-Public Use
  Company Number: CA-ELI_LILLY_AND_COMPANY-CA201105004415

PATIENT
  Age: 47 Year
  Sex: Female

DRUGS (25)
  1. METHOTREXATE [Concomitant]
  2. METOCLOPRAMIDE HYDROCHLORIDE [Concomitant]
  3. VITAMIN D [Concomitant]
  4. SINGULAIR [Concomitant]
  5. HYDROMORPHONE HCL [Concomitant]
  6. PROMETRIUM [Concomitant]
  7. TOPAMAX [Concomitant]
  8. PRILOSEC [Concomitant]
  9. VOLTAREN-XR [Concomitant]
  10. MESALAMINE [Concomitant]
     Dosage: UNK, PRN
  11. CALCIUM CARBONATE [Concomitant]
  12. FOLIC ACID [Concomitant]
  13. OXEZE [Concomitant]
  14. DOXEPIN [Concomitant]
  15. WARFARIN SODIUM [Concomitant]
  16. ALBUTEROL [Concomitant]
  17. SULFASALAZINE [Concomitant]
  18. HYDROMORPHONE HCL [Concomitant]
  19. ALBUTEROL [Concomitant]
  20. OESTROGEN [Concomitant]
  21. ORENCIA [Concomitant]
  22. FORTEO [Suspect]
     Indication: OSTEOPOROSIS
     Dosage: 20 UG, QD
     Route: 058
     Dates: start: 20091018
  23. BUSCOPAN [Concomitant]
  24. COZAAR [Concomitant]
  25. PREDNISONE [Concomitant]

REACTIONS (3)
  - LOCAL SWELLING [None]
  - DEEP VEIN THROMBOSIS [None]
  - PAIN IN EXTREMITY [None]
